FAERS Safety Report 13788366 (Version 1)
Quarter: 2017Q3

REPORT INFORMATION
  Report Type: Spontaneous
  Country: US (occurrence: US)
  Receive Date: 20170725
  Receipt Date: 20170725
  Transmission Date: 20171127
  Serious: No
  Sender: FDA-Public Use
  Company Number: US-JNJFOC-20170613004

PATIENT
  Sex: Female

DRUGS (12)
  1. CLONIDINE. [Concomitant]
     Active Substance: CLONIDINE
  2. ALLEGRA [Concomitant]
     Active Substance: FEXOFENADINE HYDROCHLORIDE
  3. IMBRUVICA [Suspect]
     Active Substance: IBRUTINIB
     Indication: B-CELL LYMPHOMA
     Route: 048
     Dates: start: 20170412
  4. TRAMADOL. [Concomitant]
     Active Substance: TRAMADOL
  5. FOLIC ACID. [Concomitant]
     Active Substance: FOLIC ACID
  6. ALLOPURINOL. [Concomitant]
     Active Substance: ALLOPURINOL
  7. SYNTHROID [Concomitant]
     Active Substance: LEVOTHYROXINE SODIUM
  8. METOPROLOL TARTRATE. [Concomitant]
     Active Substance: METOPROLOL TARTRATE
  9. BACTRIM [Concomitant]
     Active Substance: SULFAMETHOXAZOLE\TRIMETHOPRIM
  10. NEURONTIN [Concomitant]
     Active Substance: GABAPENTIN
  11. LASIX [Concomitant]
     Active Substance: FUROSEMIDE
  12. WARFARIN SODIUM. [Concomitant]
     Active Substance: WARFARIN SODIUM

REACTIONS (1)
  - Muscle spasms [Not Recovered/Not Resolved]

NARRATIVE: CASE EVENT DATE: 2017
